FAERS Safety Report 13585895 (Version 1)
Quarter: 2017Q2

REPORT INFORMATION
  Report Type: Spontaneous
  Country: CH (occurrence: CH)
  Receive Date: 20170526
  Receipt Date: 20170526
  Transmission Date: 20170830
  Serious: Yes (Other)
  Sender: FDA-Public Use
  Company Number: CH-009507513-1705CHE009244

PATIENT
  Sex: Female
  Weight: 53 kg

DRUGS (2)
  1. ANAFRANIL [Concomitant]
     Active Substance: CLOMIPRAMINE HYDROCHLORIDE
     Route: 048
     Dates: start: 200901, end: 201401
  2. NUVARING [Suspect]
     Active Substance: ETHINYL ESTRADIOL\ETONOGESTREL
     Indication: CONTRACEPTION
     Route: 067
     Dates: start: 201101, end: 201602

REACTIONS (1)
  - Androgenetic alopecia [Not Recovered/Not Resolved]

NARRATIVE: CASE EVENT DATE: 20160102
